FAERS Safety Report 16263829 (Version 4)
Quarter: 2023Q2

REPORT INFORMATION
  Report Type: Spontaneous
  Country: IT (occurrence: IT)
  Receive Date: 20190502
  Receipt Date: 20230512
  Transmission Date: 20230722
  Serious: Yes (Hospitalization, Other)
  Sender: FDA-Public Use
  Company Number: IT-AUROBINDO-AUR-APL-2019-023861

PATIENT
  Age: 78 Year
  Sex: Female

DRUGS (10)
  1. RISEDRONATE SODIUM [Suspect]
     Active Substance: RISEDRONATE SODIUM
     Indication: Thyroid cancer
     Dosage: 35 MILLIGRAM, EVERY WEEK
     Route: 065
  2. CALCIUM [Suspect]
     Active Substance: CALCIUM
     Indication: Thyroid cancer
     Dosage: 1 GRAM
     Route: 048
  3. CHOLECALCIFEROL [Suspect]
     Active Substance: CHOLECALCIFEROL
     Indication: Product used for unknown indication
     Dosage: UNK (50,000 UNITS EVERY MONTH)
     Route: 048
  4. CALCIUM CARBONATE [Suspect]
     Active Substance: CALCIUM CARBONATE
     Indication: Product used for unknown indication
     Dosage: 1 GRAM, ONCE A DAY
     Route: 048
  5. VITAMIN D [Suspect]
     Active Substance: VITAMIN D NOS
     Indication: Thyroid cancer
     Dosage: 50000 U, QMO,1 MONTH
     Route: 048
  6. TERIPARATIDE [Suspect]
     Active Substance: TERIPARATIDE
     Indication: Hormone therapy
     Dosage: 20 MICROGRAM, ONCE A DAY
     Route: 065
  7. RAMIPRIL [Concomitant]
     Active Substance: RAMIPRIL
     Indication: Hypertension
     Dosage: 5 MILLIGRAM, ONCE A DAY
     Route: 065
  8. RISEDRONIC ACID [Concomitant]
     Active Substance: RISEDRONIC ACID
     Indication: Product used for unknown indication
     Dosage: 35 MILLIGRAM, EVERY WEEK
     Route: 065
  9. SULODEXIDE [Concomitant]
     Active Substance: SULODEXIDE
     Indication: Product used for unknown indication
     Dosage: 250 UNITS EVERY 12 HOURS
     Route: 048
  10. OXYCODONE [Concomitant]
     Active Substance: OXYCODONE
     Indication: Pain
     Dosage: 5 MILLIGRAM, TWO TIMES A DAY
     Route: 065

REACTIONS (8)
  - Calciphylaxis [Recovering/Resolving]
  - Hypercalcaemia [Recovering/Resolving]
  - Skin ulcer [Recovering/Resolving]
  - Arterial thrombosis [Recovering/Resolving]
  - Metaplasia [Recovering/Resolving]
  - Hyperparathyroidism [Recovered/Resolved]
  - Pain [Recovered/Resolved]
  - Ulcer [Recovered/Resolved]
